FAERS Safety Report 6917416-1 (Version None)
Quarter: 2010Q3

REPORT INFORMATION
  Report Type: 
  Country: None (occurrence: None)
  Receive Date: 20100810
  Receipt Date: 20100802
  Transmission Date: 20110219
  Serious: Yes (Hospitalization, Other)
  Sender: FDA-Public Use
  Company Number: US-ABBOTT-10P-163-0660717-00

PATIENT
  Age: 73 Year
  Sex: Female
  Weight: 61.29 kg

DRUGS (14)
  1. TRICOR [Suspect]
     Indication: PRODUCT USED FOR UNKNOWN INDICATION
     Dates: end: 20100101
  2. CELEBREX [Suspect]
     Indication: ARTHRITIS
     Dates: start: 20100101
  3. NAPROXEN [Suspect]
     Indication: ARTHRITIS
     Dates: end: 20100101
  4. LOVASTATIN [Suspect]
     Indication: PRODUCT USED FOR UNKNOWN INDICATION
     Dates: end: 20100101
  5. CLIMARA [Suspect]
     Indication: HOT FLUSH
     Dosage: TRANSDERMAL PATCH
     Route: 062
  6. PREMPRO [Concomitant]
     Indication: HOT FLUSH
     Dates: end: 20090101
  7. ACID ACETYLSALICYLIC [Concomitant]
     Indication: PRODUCT USED FOR UNKNOWN INDICATION
  8. HYZAAR [Concomitant]
     Indication: HOT FLUSH
     Dosage: 50/12.5MG
  9. HYZAAR [Concomitant]
     Indication: HYPERTENSION
  10. FENTANYL CITRATE [Concomitant]
     Indication: PRODUCT USED FOR UNKNOWN INDICATION
     Dosage: TRANSDERMAL PATCH
  11. ACIPHEX [Concomitant]
     Indication: PRODUCT USED FOR UNKNOWN INDICATION
  12. WELLBUTRIN XL [Concomitant]
     Indication: PRODUCT USED FOR UNKNOWN INDICATION
  13. MULTI-VITAMINS [Concomitant]
     Indication: PRODUCT USED FOR UNKNOWN INDICATION
  14. RESTORIL [Concomitant]
     Indication: PRODUCT USED FOR UNKNOWN INDICATION

REACTIONS (4)
  - ALOPECIA [None]
  - BACK DISORDER [None]
  - TYPE 2 DIABETES MELLITUS [None]
  - WEIGHT DECREASED [None]
